FAERS Safety Report 6263452-0 (Version None)
Quarter: 2009Q3

REPORT INFORMATION
  Report Type: 
  Country: None (occurrence: None)
  Receive Date: 20090710
  Receipt Date: 20090304
  Transmission Date: 20100115
  Serious: No
  Sender: FDA-Public Use
  Company Number: A0771564A

PATIENT
  Age: 6 Year
  Sex: Female

DRUGS (2)
  1. FLOVENT [Suspect]
     Indication: WHEEZING
     Dates: start: 20090304
  2. AZITHROMYCIN [Concomitant]

REACTIONS (1)
  - EXPIRED DRUG ADMINISTERED [None]
